FAERS Safety Report 16881297 (Version 1)
Quarter: 2019Q4

REPORT INFORMATION
  Report Type: Spontaneous
  Country: US (occurrence: US)
  Receive Date: 20190808
  Receipt Date: 20190808
  Transmission Date: 20200122
  Serious: No
  Sender: FDA-Public Use
  Company Number: None

PATIENT
  Age: 54 Year
  Sex: Female

DRUGS (1)
  1. REPATHA [Suspect]
     Active Substance: EVOLOCUMAB
     Route: 058
     Dates: start: 201907

REACTIONS (5)
  - Paraesthesia [None]
  - Alopecia [None]
  - Blood glucose increased [None]
  - Blood cholesterol decreased [None]
  - Weight increased [None]

NARRATIVE: CASE EVENT DATE: 20190710
